FAERS Safety Report 22264606 (Version 3)
Quarter: 2023Q2

REPORT INFORMATION
  Report Type: Spontaneous
  Country: MX (occurrence: None)
  Receive Date: 20230428
  Receipt Date: 20230622
  Transmission Date: 20230722
  Serious: Yes (Death, Other)
  Sender: FDA-Public Use
  Company Number: 2023A097998

PATIENT
  Age: 74 Year
  Sex: Male
  Weight: 83 kg

DRUGS (2)
  1. DURVALUMAB [Suspect]
     Active Substance: DURVALUMAB
     Indication: Hepatocellular carcinoma
     Route: 042
     Dates: start: 20221107, end: 20230109
  2. METOPROLOL [Concomitant]
     Active Substance: METOPROLOL
     Route: 048

REACTIONS (7)
  - Hepatic function abnormal [Fatal]
  - Ascites [Fatal]
  - Malignant neoplasm progression [Fatal]
  - Child-Pugh-Turcotte score abnormal [Unknown]
  - Blood bilirubin increased [Unknown]
  - Transaminases increased [Unknown]
  - Weight increased [Not Recovered/Not Resolved]
